FAERS Safety Report 7588899-1 (Version None)
Quarter: 2011Q3

REPORT INFORMATION
  Report Type: 
  Country: None (occurrence: None)
  Receive Date: 20110705
  Receipt Date: 20110623
  Transmission Date: 20111222
  Serious: Yes (Other)
  Sender: FDA-Public Use
  Company Number: US-JNJFOC-20110612389

PATIENT
  Sex: Female

DRUGS (6)
  1. FENTANYL-100 [Suspect]
     Indication: MIGRAINE
     Route: 062
     Dates: start: 20110617
  2. FENTANYL-100 [Suspect]
     Indication: MIGRAINE
     Route: 062
     Dates: end: 20110617
  3. FENTANYL-100 [Suspect]
     Route: 062
  4. FENTANYL-100 [Suspect]
     Indication: INTERVERTEBRAL DISC DEGENERATION
     Route: 062
     Dates: end: 20110617
  5. FENTANYL-100 [Suspect]
     Route: 062
  6. FENTANYL-100 [Suspect]
     Indication: INTERVERTEBRAL DISC DEGENERATION
     Route: 062
     Dates: start: 20110617

REACTIONS (3)
  - DRUG ADMINISTERED AT INAPPROPRIATE SITE [None]
  - OSTEOARTHRITIS [None]
  - PRODUCT QUALITY ISSUE [None]
